FAERS Safety Report 25201943 (Version 1)
Quarter: 2025Q2

REPORT INFORMATION
  Report Type: Spontaneous
  Country: US (occurrence: US)
  Receive Date: 20250416
  Receipt Date: 20250416
  Transmission Date: 20250717
  Serious: Yes (Other)
  Sender: AUROBINDO
  Company Number: US-AUROBINDO-AUR-APL-2025-019067

PATIENT
  Age: 69 Year
  Sex: Male

DRUGS (10)
  1. METHYLPREDNISOLONE [Suspect]
     Active Substance: METHYLPREDNISOLONE
     Indication: Myocarditis
     Route: 065
  2. MYCOPHENOLIC ACID [Suspect]
     Active Substance: MYCOPHENOLIC ACID
     Indication: Myocarditis
     Dosage: 1500 MILLIGRAM, TWO TIMES A DAY
     Route: 042
  3. ABATACEPT [Concomitant]
     Active Substance: ABATACEPT
     Indication: Myocarditis
     Route: 065
  4. ABATACEPT [Concomitant]
     Active Substance: ABATACEPT
     Indication: Myositis
  5. ABATACEPT [Concomitant]
     Active Substance: ABATACEPT
     Indication: Myasthenia gravis
  6. ABATACEPT [Concomitant]
     Active Substance: ABATACEPT
     Indication: Hepatitis
  7. RUXOLITINIB [Concomitant]
     Active Substance: RUXOLITINIB
     Indication: Myocarditis
     Route: 065
  8. RUXOLITINIB [Concomitant]
     Active Substance: RUXOLITINIB
     Indication: Myositis
  9. RUXOLITINIB [Concomitant]
     Active Substance: RUXOLITINIB
     Indication: Myasthenia gravis
  10. RUXOLITINIB [Concomitant]
     Active Substance: RUXOLITINIB
     Indication: Hepatitis

REACTIONS (1)
  - Drug ineffective [Unknown]
